FAERS Safety Report 18314954 (Version 1)
Quarter: 2020Q3

REPORT INFORMATION
  Report Type: Report from Study
  Country: BE (occurrence: BE)
  Receive Date: 20200925
  Receipt Date: 20200925
  Transmission Date: 20201103
  Serious: Yes (Other)
  Sender: FDA-Public Use
  Company Number: BE-INCYTE CORPORATION-2019IN001677

PATIENT

DRUGS (22)
  1. ASAFLOW [Concomitant]
     Active Substance: ASPIRIN
     Dosage: 80 OT
     Route: 065
     Dates: start: 20181213, end: 20181218
  2. QVAR [Concomitant]
     Active Substance: BECLOMETHASONE DIPROPIONATE
     Indication: COUGH
     Dosage: UNK
     Route: 065
     Dates: start: 2015, end: 2016
  3. MEDROL [Concomitant]
     Active Substance: METHYLPREDNISOLONE
     Indication: FACIAL PARALYSIS
     Dosage: 64 OT
     Route: 065
     Dates: start: 20161208, end: 20161212
  4. DEXTRAN 70 [Concomitant]
     Active Substance: DEXTRAN 70
     Indication: FACIAL PARALYSIS
     Dosage: UNK
     Route: 065
     Dates: start: 20161208
  5. TARDYFERON [Concomitant]
     Active Substance: FERROUS SULFATE
     Indication: ESSENTIAL THROMBOCYTHAEMIA
     Dosage: 80 OT
     Route: 065
     Dates: start: 201509, end: 2016
  6. PANTOPRAZOLE [Concomitant]
     Active Substance: PANTOPRAZOLE
     Indication: COUGH
     Dosage: 20 OT
     Route: 065
     Dates: start: 2015, end: 2016
  7. LIQUID PARAFFIN [Concomitant]
     Indication: FACIAL PARALYSIS
     Dosage: UNK
     Route: 065
     Dates: start: 20161208
  8. JAKAVI [Suspect]
     Active Substance: RUXOLITINIB
     Dosage: 15 OT
     Route: 048
     Dates: start: 20200410, end: 20200423
  9. AMLODIPINE [Concomitant]
     Active Substance: AMLODIPINE BESYLATE
     Indication: HYPERTENSION
     Dosage: 5 OT
     Route: 065
     Dates: start: 20160712
  10. JAKAVI [Suspect]
     Active Substance: RUXOLITINIB
     Indication: POLYCYTHAEMIA VERA
     Dosage: 20 OT
     Route: 048
     Dates: start: 20181129, end: 20181213
  11. ASAFLOW [Concomitant]
     Active Substance: ASPIRIN
     Indication: POLYCYTHAEMIA VERA
     Dosage: 80 OT
     Route: 065
     Dates: end: 20181212
  12. HYDREA [Concomitant]
     Active Substance: HYDROXYUREA
     Indication: ESSENTIAL THROMBOCYTHAEMIA
     Dosage: 500 OT
     Route: 065
  13. VITAMIN B12 [Concomitant]
     Active Substance: CYANOCOBALAMIN
     Indication: FACIAL PARALYSIS
     Dosage: UNK
     Route: 065
     Dates: start: 2017
  14. L?THYROXINE [LEVOTHYROXINE] [Concomitant]
     Active Substance: LEVOTHYROXINE
     Indication: HYPOTHYROIDISM
     Dosage: 50 OT
     Route: 065
  15. JAKAVI [Suspect]
     Active Substance: RUXOLITINIB
     Dosage: 30 OT
     Route: 048
     Dates: start: 20181214, end: 20200409
  16. JAKAVI [Suspect]
     Active Substance: RUXOLITINIB
     Dosage: 30 OT
     Route: 048
     Dates: start: 20200424
  17. XAGRID [Concomitant]
     Active Substance: ANAGRELIDE HYDROCHLORIDE
     Dosage: 0.5 OT
     Route: 065
     Dates: start: 20151208, end: 20181128
  18. ASAFLOW [Concomitant]
     Active Substance: ASPIRIN
     Dosage: 80 OT
     Route: 065
     Dates: start: 20181219
  19. XAGRID [Concomitant]
     Active Substance: ANAGRELIDE HYDROCHLORIDE
     Indication: ESSENTIAL THROMBOCYTHAEMIA
     Dosage: 0.5 OT
     Route: 065
     Dates: start: 20150707, end: 20150929
  20. VITAMIN B1 [Concomitant]
     Active Substance: THIAMINE HYDROCHLORIDE
     Indication: FACIAL PARALYSIS
     Dosage: UNK
     Route: 065
     Dates: start: 2017
  21. VITAMIN B6 [Concomitant]
     Active Substance: PYRIDOXINE HYDROCHLORIDE
     Indication: FACIAL PARALYSIS
     Dosage: UNK
     Route: 065
     Dates: start: 2017
  22. VITAMIN B2 [Concomitant]
     Active Substance: RIBOFLAVIN
     Indication: FACIAL PARALYSIS
     Dosage: UNK
     Route: 065
     Dates: start: 2017

REACTIONS (28)
  - Red blood cell count increased [Unknown]
  - Back pain [Recovered/Resolved]
  - Bursitis [Recovering/Resolving]
  - Cataract [Recovering/Resolving]
  - Haemoglobin increased [Unknown]
  - Sleep disorder [Recovering/Resolving]
  - Aspartate aminotransferase increased [Unknown]
  - Fatigue [Recovering/Resolving]
  - Onychalgia [Recovered/Resolved]
  - Blood potassium increased [Unknown]
  - Alanine aminotransferase increased [Unknown]
  - Blood glucose increased [Unknown]
  - Upper respiratory tract infection [Recovered/Resolved]
  - Vitamin B12 increased [Unknown]
  - Haematocrit increased [Unknown]
  - Blood lactate dehydrogenase increased [Unknown]
  - Mean cell haemoglobin decreased [Unknown]
  - Upper respiratory tract infection [Recovered/Resolved]
  - Upper respiratory tract infection [Recovered/Resolved]
  - Neutrophil count increased [Unknown]
  - Depression [Recovering/Resolving]
  - White blood cell count increased [Unknown]
  - Platelet count increased [Unknown]
  - Lymphocyte count decreased [Unknown]
  - Red cell distribution width increased [Unknown]
  - Blood bilirubin decreased [Unknown]
  - Basophil count increased [Unknown]
  - Poor quality sleep [Recovering/Resolving]

NARRATIVE: CASE EVENT DATE: 20181213
